FAERS Safety Report 5679119-3 (Version None)
Quarter: 2008Q1

REPORT INFORMATION
  Report Type: 
  Country: None (occurrence: None)
  Receive Date: 20080321
  Receipt Date: 20080313
  Transmission Date: 20080703
  Serious: Yes (Death, Other)
  Sender: FDA-Public Use
  Company Number: TAP2008Q00332

PATIENT
  Age: 44 Year
  Sex: Female

DRUGS (17)
  1. PREVACID [Suspect]
     Indication: NAUSEA
     Dosage: 30 MG, 1 IN 1 D, PER ORAL
     Route: 048
     Dates: start: 20060101
  2. CHANTIX [Suspect]
     Indication: SMOKING CESSATION THERAPY
     Dosage: 0.5 MG, 1 IN 1 D, PER ORAL
     Route: 048
     Dates: start: 20070802
  3. HYDROCO-APAP (PROCET /01554201/) [Suspect]
     Indication: PAIN
     Dosage: UP TO TID, PER ORAL
     Route: 048
     Dates: start: 19880101
  4. TEMAZEPAM [Suspect]
     Indication: INSOMNIA
     Dosage: 15 MG, QPM, PER ORAL
     Route: 048
  5. TEMAZEPAM [Suspect]
     Indication: POST-TRAUMATIC STRESS DISORDER
     Dosage: 15 MG, QPM, PER ORAL
     Route: 048
  6. ZOLPIDEM [Suspect]
     Indication: INSOMNIA
     Dosage: 10 MG, QPM, PER ORAL
     Route: 048
  7. MIRTAZAPINE [Suspect]
     Indication: DEPRESSION
     Dosage: 30 MG, 1 TAB QAM, 2 TAB QPM, PER ORAL
     Route: 048
     Dates: start: 20000101
  8. PROMETHAZINE [Suspect]
     Indication: NAUSEA
     Dosage: 25 MG, Q 4-6 HRS, PER ORAL
     Route: 048
     Dates: start: 20060101
  9. ZOFRAN [Suspect]
     Indication: NAUSEA
     Dosage: 8 MG, UP TO TID, PER ORAL
     Route: 048
     Dates: start: 20070201
  10. TRAZODONE HCL [Concomitant]
  11. GABAPENTIN [Concomitant]
  12. PROVIGIL [Concomitant]
  13. CLONAZEPAM [Concomitant]
  14. RISPERDAL [Concomitant]
  15. ASTELIN(DIPROPHYLLINE) [Concomitant]
  16. LITHIUM-ER(LITHIUM) [Concomitant]
  17. METHOCARBAMOL [Concomitant]

REACTIONS (2)
  - DRUG INTERACTION [None]
  - DRUG TOXICITY [None]
